FAERS Safety Report 17460017 (Version 1)
Quarter: 2020Q1

REPORT INFORMATION
  Report Type: Spontaneous
  Country: US (occurrence: US)
  Receive Date: 20200225
  Receipt Date: 20200225
  Transmission Date: 20200409
  Serious: Yes (Other)
  Sender: FDA-Public Use
  Company Number: US-BRISTOL-MYERS SQUIBB COMPANY-BMS-2020-016024

PATIENT
  Age: 72 Year
  Sex: Male

DRUGS (2)
  1. WARFARIN SODIUM. [Suspect]
     Active Substance: WARFARIN SODIUM
     Indication: VENTRICULAR ASSIST DEVICE INSERTION
     Dosage: UNK
     Route: 065
  2. ASPIRIN. [Suspect]
     Active Substance: ASPIRIN
     Indication: VENTRICULAR ASSIST DEVICE INSERTION
     Dosage: UNK
     Route: 065
     Dates: start: 201902

REACTIONS (3)
  - Large intestinal haemorrhage [Unknown]
  - Haemoglobin decreased [Unknown]
  - International normalised ratio increased [Unknown]
